FAERS Safety Report 24855952 (Version 1)
Quarter: 2025Q1

REPORT INFORMATION
  Report Type: Spontaneous
  Country: US (occurrence: None)
  Receive Date: 20250116
  Receipt Date: 20250116
  Transmission Date: 20250408
  Serious: Yes (unspecified)
  Sender: FDA-CTU
  Company Number: None

PATIENT
  Age: 66 Year
  Sex: Female
  Weight: 54.43 kg

DRUGS (13)
  1. GADAVIST [Suspect]
     Active Substance: GADOBUTROL
     Indication: Magnetic resonance imaging head
  2. PENTASA [Concomitant]
     Active Substance: MESALAMINE
  3. FOLIC ACID [Concomitant]
     Active Substance: FOLIC ACID
  4. B-12 INJECTIONS [Concomitant]
  5. PREVALITE POWDER [Concomitant]
  6. SYNTHROID [Concomitant]
     Active Substance: LEVOTHYROXINE SODIUM
  7. RECLAST [Concomitant]
     Active Substance: ZOLEDRONIC ACID
  8. KIRKLAND (COSTCO) MATURE MULTI-VITAMIN [Concomitant]
  9. KIRKLAND CALCIUM CITRATE (WITH MAGNESIUM, ZINC, D3) [Concomitant]
  10. LYSINE [Concomitant]
     Active Substance: LYSINE
  11. AIRBORNE [Concomitant]
     Active Substance: HERBALS\MINERALS\VITAMINS
  12. Kirkland psyllium fiber capsules [Concomitant]
  13. OMEGA-3 ACIDS [Concomitant]
     Active Substance: OMEGA-3 FATTY ACIDS

REACTIONS (2)
  - Oral mucosal blistering [None]
  - Gingival pain [None]

NARRATIVE: CASE EVENT DATE: 20250102
